FAERS Safety Report 18880596 (Version 2)
Quarter: 2022Q4

REPORT INFORMATION
  Report Type: Spontaneous
  Country: US (occurrence: US)
  Receive Date: 20210212
  Receipt Date: 20221120
  Transmission Date: 20230113
  Serious: Yes (Other)
  Sender: FDA-Public Use
  Company Number: US-SA-SAC20210206000638

PATIENT
  Age: 68 Year
  Sex: Male

DRUGS (1)
  1. ZANTAC [Suspect]
     Active Substance: RANITIDINE HYDROCHLORIDE
     Indication: Gastric ulcer
     Dosage: 75 MG, QD
     Dates: start: 199801, end: 201901

REACTIONS (1)
  - Pancreatic carcinoma stage III [Not Recovered/Not Resolved]

NARRATIVE: CASE EVENT DATE: 20190808
